FAERS Safety Report 4320439-2 (Version None)
Quarter: 2004Q1

REPORT INFORMATION
  Report Type: 
  Country: None (occurrence: None)
  Receive Date: 20040317
  Receipt Date: 20040304
  Transmission Date: 20041129
  Serious: Yes (Hospitalization, Other)
  Sender: FDA-Public Use
  Company Number: 2004015123

PATIENT
  Age: 43 Year
  Sex: Female
  Weight: 61.6892 kg

DRUGS (4)
  1. ZOLOFT [Suspect]
     Indication: DEPRESSION
     Dosage: 100 MG (DAILY), ORAL
     Route: 048
     Dates: start: 20030101
  2. METAXALONE [Concomitant]
  3. ATENOLOL [Concomitant]
  4. ZOLPIDEM TARTRATE [Concomitant]

REACTIONS (9)
  - ABDOMINAL DISTENSION [None]
  - ARTHRITIS [None]
  - BACK PAIN [None]
  - BALANCE DISORDER [None]
  - DEPRESSION [None]
  - HEPATIC CIRRHOSIS [None]
  - HEPATITIS C [None]
  - INFREQUENT BOWEL MOVEMENTS [None]
  - UTERINE LEIOMYOMA [None]
